FAERS Safety Report 6828572-8 (Version None)
Quarter: 2010Q3

REPORT INFORMATION
  Report Type: 
  Country: None (occurrence: None)
  Receive Date: 20100709
  Receipt Date: 20070213
  Transmission Date: 20110219
  Serious: No
  Sender: FDA-Public Use
  Company Number: US-PFIZER INC-2007013371

PATIENT
  Sex: Female
  Weight: 62.14 kg

DRUGS (10)
  1. CHANTIX [Suspect]
     Indication: SMOKING CESSATION THERAPY
     Dates: start: 20070130, end: 20070212
  2. NEXIUM [Concomitant]
  3. PROVIGIL [Concomitant]
  4. PRAVACHOL [Concomitant]
  5. MIRAPEX [Concomitant]
  6. CLONAZEPAM [Concomitant]
  7. TRICOR [Concomitant]
  8. CYMBALTA [Concomitant]
     Indication: NEURALGIA
  9. MULTI-VITAMINS [Concomitant]
  10. VITAMIN B COMPLEX CAP [Concomitant]

REACTIONS (4)
  - INSOMNIA [None]
  - MALAISE [None]
  - NAUSEA [None]
  - VOMITING [None]
